FAERS Safety Report 20974334 (Version 7)
Quarter: 2025Q4

REPORT INFORMATION
  Report Type: Report from Study
  Country: US (occurrence: US)
  Receive Date: 20220617
  Receipt Date: 20251210
  Transmission Date: 20260118
  Serious: Yes (Hospitalization, Other)
  Sender: TAKEDA
  Company Number: US-TAKEDA-2022TUS038907

PATIENT
  Age: 63 Year
  Sex: Female
  Weight: 105 kg

DRUGS (63)
  1. PARATHYROID HORMONE [Suspect]
     Active Substance: PARATHYROID HORMONE
     Indication: Hypoparathyroidism
     Dosage: 100 MICROGRAM, QD
     Dates: start: 20171017, end: 20180205
  2. PARATHYROID HORMONE [Suspect]
     Active Substance: PARATHYROID HORMONE
     Dosage: 50 MICROGRAM, QD
     Dates: start: 20160721, end: 20170308
  3. PARATHYROID HORMONE [Suspect]
     Active Substance: PARATHYROID HORMONE
     Dosage: 75 MICROGRAM, QD
     Dates: start: 20170309, end: 20171016
  4. PARATHYROID HORMONE [Suspect]
     Active Substance: PARATHYROID HORMONE
     Dosage: 75 MICROGRAM, QD
     Dates: start: 20180206, end: 20190913
  5. PARATHYROID HORMONE [Suspect]
     Active Substance: PARATHYROID HORMONE
     Dosage: 75 MICROGRAM, QD
     Dates: start: 20191110, end: 20221128
  6. HYDRODIURIL [Concomitant]
     Active Substance: HYDROCHLOROTHIAZIDE
     Indication: Hypertension
     Dosage: UNK
  7. EFFEXOR [Concomitant]
     Active Substance: VENLAFAXINE HYDROCHLORIDE
     Indication: Antidepressant therapy
     Dosage: UNK
  8. NASONEX [Concomitant]
     Active Substance: MOMETASONE FUROATE
     Indication: Multiple allergies
     Dosage: UNK
  9. LEVOTHYROXINE [Concomitant]
     Active Substance: LEVOTHYROXINE
     Indication: Hypothyroidism
     Dosage: UNK
  10. ABILIFY [Concomitant]
     Active Substance: ARIPIPRAZOLE
     Indication: Depression
     Dosage: UNK
  11. AGGRENOX [Concomitant]
     Active Substance: ASPIRIN\DIPYRIDAMOLE
     Indication: Cerebrovascular accident
     Dosage: UNK
  12. SODIUM HYALURONATE [Concomitant]
     Active Substance: HYALURONATE SODIUM
     Indication: Osteoarthritis
     Dosage: UNK
  13. TICAGRELOR [Concomitant]
     Active Substance: TICAGRELOR
     Indication: Cerebrovascular accident
     Dosage: UNK
  14. LIDODERM [Concomitant]
     Active Substance: LIDOCAINE
     Indication: Back pain
     Dosage: UNK
     Route: 061
  15. IPRATROPIUM [Concomitant]
     Active Substance: IPRATROPIUM
     Indication: Cough
     Dosage: UNK
  16. IPRATROPIUM [Concomitant]
     Active Substance: IPRATROPIUM
     Dosage: UNK
  17. ASPIRIN [Concomitant]
     Active Substance: ASPIRIN
     Indication: Back pain
     Dosage: UNK
  18. ASPIRIN [Concomitant]
     Active Substance: ASPIRIN
     Indication: Intracranial aneurysm
     Dosage: UNK
  19. DICLOFENAC [Concomitant]
     Active Substance: DICLOFENAC
     Indication: Back pain
     Dosage: UNK
     Route: 061
  20. AZITHROMYCIN [Concomitant]
     Active Substance: AZITHROMYCIN
     Indication: Laryngitis
     Dosage: UNK
     Dates: start: 20180530, end: 20180618
  21. SIMETHICONE (DIMETHICONE) [Concomitant]
     Active Substance: DIMETHICONE
     Indication: Gastrooesophageal reflux disease
     Dosage: UNK
     Dates: start: 20160406, end: 20160615
  22. DIPRIVAN [Concomitant]
     Active Substance: PROPOFOL
     Indication: Anaesthesia
     Dosage: UNK
     Dates: start: 20160406, end: 20160406
  23. NEOSYNEPHRINE [Concomitant]
     Active Substance: PHENYLEPHRINE HYDROCHLORIDE
     Indication: Nasal congestion
     Dosage: UNK
     Dates: start: 20160615, end: 20160615
  24. ROBINUL [Concomitant]
     Active Substance: GLYCOPYRROLATE
     Indication: Secretion discharge
     Dosage: UNK
     Dates: start: 20160615, end: 20160615
  25. XYLOCAINE [Concomitant]
     Active Substance: LIDOCAINE HYDROCHLORIDE
     Indication: Anaesthesia
     Dosage: UNK
     Dates: start: 20160615, end: 20160615
  26. XYLOCAINE [Concomitant]
     Active Substance: LIDOCAINE HYDROCHLORIDE
     Indication: Gastrooesophageal reflux disease
     Dosage: UNK
     Dates: start: 20160815, end: 20160815
  27. XYLOCAINE [Concomitant]
     Active Substance: LIDOCAINE HYDROCHLORIDE
     Dosage: UNK
     Dates: start: 20161208, end: 20161208
  28. CARAFATE [Concomitant]
     Active Substance: SUCRALFATE
     Indication: Antacid therapy
     Dosage: UNK
     Dates: start: 20160615, end: 20161006
  29. SEROQUEL [Concomitant]
     Active Substance: QUETIAPINE FUMARATE
     Indication: Antipsychotic therapy
     Dosage: UNK
     Dates: start: 20140808, end: 20160111
  30. HYGROTON [Concomitant]
     Active Substance: CHLORTHALIDONE
     Indication: Hypertension
     Dosage: UNK
     Dates: start: 20141106, end: 20160111
  31. ALLEGRA [Concomitant]
     Active Substance: FEXOFENADINE HYDROCHLORIDE
     Indication: Multiple allergies
     Dosage: UNK
     Dates: start: 20150630, end: 20160111
  32. DOXAZOSIN MESYLATE [Concomitant]
     Active Substance: DOXAZOSIN MESYLATE
     Indication: Hypertension
     Dosage: UNK
     Dates: start: 20150630, end: 20160111
  33. METHOTREXATE SODIUM [Concomitant]
     Active Substance: METHOTREXATE SODIUM
     Indication: Arthritis
     Dosage: UNK
  34. REMERON [Concomitant]
     Active Substance: MIRTAZAPINE
     Indication: Antidepressant therapy
     Dosage: UNK
  35. ZANTAC [Concomitant]
     Active Substance: RANITIDINE HYDROCHLORIDE
     Indication: Antacid therapy
     Dosage: UNK
     Dates: start: 20160308, end: 20161006
  36. DEXILANT [Concomitant]
     Active Substance: DEXLANSOPRAZOLE
     Indication: Dyspepsia
     Dosage: UNK
     Dates: start: 20160308, end: 20161006
  37. DEXILANT [Concomitant]
     Active Substance: DEXLANSOPRAZOLE
     Indication: Gastrooesophageal reflux disease
  38. VERAMYST [Concomitant]
     Active Substance: FLUTICASONE FUROATE
     Indication: Multiple allergies
     Dosage: UNK
     Dates: start: 20131015, end: 20160706
  39. ALTACE [Concomitant]
     Active Substance: RAMIPRIL
     Indication: Hypertension
     Dosage: UNK
     Dates: start: 20100520, end: 20160111
  40. LIPITOR [Concomitant]
     Active Substance: ATORVASTATIN CALCIUM
     Indication: Hypertension
     Dosage: UNK
     Dates: start: 20160805, end: 20170605
  41. BARIUM SULFATE [Concomitant]
     Active Substance: BARIUM SULFATE
     Indication: Imaging procedure
     Dosage: UNK
     Dates: start: 20160628, end: 20160628
  42. CYANOCOBALAMIN [Concomitant]
     Active Substance: CYANOCOBALAMIN
     Indication: Anaemia
     Dosage: UNK
     Dates: start: 20160927, end: 20160927
  43. AFLURIA NOS [Concomitant]
     Active Substance: INFLUENZA VIRUS VACCINE TRIVALENT TYPE A+B AFLURIA
     Indication: Immunisation
     Dosage: UNK
     Dates: start: 20160927, end: 20160927
  44. EPOETIN ALFA [Concomitant]
     Active Substance: ERYTHROPOIETIN
     Indication: Anaemia
     Dosage: UNK
     Dates: start: 20171117, end: 20171208
  45. IRON DEXTRAN [Concomitant]
     Active Substance: IRON DEXTRAN
     Indication: Anaemia
     Dosage: UNK
     Dates: start: 20171204, end: 20171204
  46. BETAMETHASONE ACETATE\BETAMETHASONE SODIUM PHOSPHATE [Concomitant]
     Active Substance: BETAMETHASONE ACETATE\BETAMETHASONE SODIUM PHOSPHATE
     Indication: Arthralgia
     Dosage: UNK
     Dates: start: 20171031, end: 20171031
  47. LIDOCAINE [Concomitant]
     Active Substance: LIDOCAINE
     Indication: Arthralgia
     Dosage: UNK
     Dates: start: 20171031, end: 20171031
  48. CEPHALEXIN [Concomitant]
     Active Substance: CEPHALEXIN
     Indication: Bronchitis
     Dosage: UNK
     Dates: start: 20171011, end: 20171011
  49. COSYNTROPIN [Concomitant]
     Active Substance: COSYNTROPIN
     Indication: Blood corticotrophin
  50. BENZONATATE [Concomitant]
     Active Substance: BENZONATATE
     Indication: Cough
     Dosage: UNK
     Dates: start: 20171214, end: 20180118
  51. PREDNISONE [Concomitant]
     Active Substance: PREDNISONE
     Indication: Bronchitis
     Dosage: UNK
     Dates: start: 20171218, end: 20171223
  52. LEVOFLOXACIN [Concomitant]
     Active Substance: LEVOFLOXACIN
     Indication: Bronchitis
     Dosage: UNK
     Dates: start: 20171218, end: 20171225
  53. GUAIFENESIN [Concomitant]
     Active Substance: GUAIFENESIN
     Indication: Cough
     Dosage: UNK
     Dates: start: 20171218, end: 20180118
  54. ALBUTEROL [Concomitant]
     Active Substance: ALBUTEROL
     Indication: Bronchitis
     Dosage: UNK
     Dates: start: 20171228, end: 20180118
  55. AMOXICILLIN AND CLAVULANATE POTASSIUM [Concomitant]
     Active Substance: AMOXICILLIN\CLAVULANATE POTASSIUM
     Indication: Bronchitis
     Dosage: UNK
     Dates: start: 20180102, end: 20180109
  56. DITROPAN [Concomitant]
     Active Substance: OXYBUTYNIN CHLORIDE
     Indication: Incontinence
     Dosage: UNK
  57. CEFPODOXIME [Concomitant]
     Active Substance: CEFPODOXIME
     Indication: Urinary tract infection
     Dosage: UNK
     Dates: start: 20190904, end: 20190913
  58. MAGNESIUM [Concomitant]
     Active Substance: MAGNESIUM
     Dosage: 200 MILLIGRAM, BID
     Dates: start: 20170317
  59. VITAMIN D [Concomitant]
     Active Substance: VITAMIN D NOS
     Dosage: 1000 INTERNATIONAL UNIT, QD
     Dates: start: 20170615
  60. CALCIUM CARBONATE [Concomitant]
     Active Substance: CALCIUM CARBONATE
     Dosage: 600 MILLIGRAM, TID
     Dates: start: 20180330, end: 20181019
  61. CALCIUM CARBONATE [Concomitant]
     Active Substance: CALCIUM CARBONATE
     Dosage: 1000 MILLIGRAM, QD
     Dates: start: 20180207, end: 20180330
  62. CALCITRIOL [Concomitant]
     Active Substance: CALCITRIOL
     Dosage: 0.5 MICROGRAM, QD
     Dates: start: 20180207, end: 20180330
  63. CALCITRIOL [Concomitant]
     Active Substance: CALCITRIOL
     Dosage: 0.5 MICROGRAM, QD
     Dates: start: 20180330

REACTIONS (1)
  - Intracranial aneurysm [Not Recovered/Not Resolved]

NARRATIVE: CASE EVENT DATE: 20171120
